FAERS Safety Report 9659831 (Version 3)
Quarter: 2014Q1

REPORT INFORMATION
  Report Type: Spontaneous
  Country: US (occurrence: US)
  Receive Date: 20131031
  Receipt Date: 20140115
  Transmission Date: 20141002
  Serious: Yes (Other)
  Sender: FDA-Public Use
  Company Number: US-ASTELLAS-2013US011203

PATIENT
  Age: 86 Year
  Sex: Male
  Weight: 91 kg

DRUGS (7)
  1. XTANDI [Suspect]
     Indication: PROSTATE CANCER
     Dosage: 160 MG, UID/QD
     Route: 048
     Dates: start: 201302, end: 20130917
  2. TAMSULOSIN [Concomitant]
     Indication: DYSPEPSIA
     Dosage: 0.4 MG, UID/QD
     Route: 048
     Dates: start: 2011
  3. LEUPROLIDE [Concomitant]
     Indication: HORMONE THERAPY
     Dosage: 30 MG, EVERY 4 MONTHS
     Route: 065
     Dates: start: 2010
  4. ZOCOR [Concomitant]
     Indication: BLOOD CHOLESTEROL
     Dosage: 20 MG, UID/QD
     Route: 048
     Dates: start: 2011
  5. VITAMIN D                          /00107901/ [Concomitant]
     Indication: HYPOVITAMINOSIS
     Dosage: 185 MG, UID/QD
     Route: 048
     Dates: start: 2010
  6. LISINOPRIL [Concomitant]
     Indication: BLOOD PRESSURE
     Dosage: 20 MG, UID/QD
     Route: 048
     Dates: start: 2011
  7. FISH OIL [Concomitant]
     Indication: CARDIAC DISORDER
     Dosage: 1000 MG, UID/QD
     Route: 048
     Dates: start: 2011

REACTIONS (3)
  - Renal failure [Unknown]
  - Malignant neoplasm progression [Unknown]
  - Prostatic specific antigen increased [Unknown]
